FAERS Safety Report 23613747 (Version 2)
Quarter: 2024Q1

REPORT INFORMATION
  Report Type: Spontaneous
  Country: US (occurrence: US)
  Receive Date: 20240309
  Receipt Date: 20240322
  Transmission Date: 20240410
  Serious: No
  Sender: FDA-Public Use
  Company Number: US-Amphastar Pharmaceuticals, Inc.-2154206

PATIENT
  Age: 53 Year
  Sex: Female
  Weight: 104.55 kg

DRUGS (1)
  1. BAQSIMI [Suspect]
     Active Substance: GLUCAGON
     Route: 045
     Dates: start: 20231101, end: 20231101

REACTIONS (7)
  - Rhinalgia [Recovered/Resolved]
  - Nasal discomfort [Unknown]
  - Vertigo [Unknown]
  - Migraine [Unknown]
  - Swelling face [Unknown]
  - Sinus disorder [Unknown]
  - Nasal discomfort [Unknown]

NARRATIVE: CASE EVENT DATE: 20231101
